FAERS Safety Report 6646862-9 (Version None)
Quarter: 2010Q1

REPORT INFORMATION
  Report Type: 
  Country: None (occurrence: None)
  Receive Date: 20100323
  Receipt Date: 20100311
  Transmission Date: 20100710
  Serious: Yes (Hospitalization, Other)
  Sender: FDA-Public Use
  Company Number: US-PFIZER INC-2010032210

PATIENT
  Sex: Female

DRUGS (6)
  1. CHANTIX [Suspect]
     Indication: SMOKING CESSATION THERAPY
     Dosage: UNK
     Route: 048
     Dates: start: 20080101
  2. CHANTIX [Suspect]
     Dosage: 0.5 MG, 1X/DAY
     Dates: start: 20100304, end: 20100301
  3. CHANTIX [Suspect]
     Dosage: 1 MG, 2X/DAY
     Dates: start: 20100301
  4. GEODON [Concomitant]
     Dosage: 100 MG, 2X/DAY
     Route: 048
  5. LITHIUM [Concomitant]
     Dosage: 600 MG, 2X/DAY
     Route: 048
  6. SEROQUEL [Concomitant]
     Dosage: 1000 MG, 2X/DAY
     Route: 048

REACTIONS (2)
  - DEPRESSION [None]
  - MENTAL DISORDER [None]
